FAERS Safety Report 8858821 (Version 1)
Quarter: 2012Q4

REPORT INFORMATION
  Report Type: 
  Country: ES (occurrence: ES)
  Receive Date: 20121024
  Receipt Date: 20121024
  Transmission Date: 20130627
  Serious: Yes (Other)
  Sender: FDA-Public Use
  Company Number: ES-JNJFOC-20121010821

PATIENT
  Age: 50 Year
  Sex: Male

DRUGS (5)
  1. ZALDIAR [Suspect]
     Indication: BACK PAIN
     Route: 048
     Dates: start: 201105, end: 20120219
  2. IBUPROFEN [Suspect]
     Indication: BACK PAIN
     Route: 048
     Dates: start: 201112, end: 20120219
  3. METAMIZOLE MAGNESIUM [Suspect]
     Indication: BACK PAIN
     Route: 048
     Dates: start: 201112, end: 20120224
  4. SIMVASTATIN [Concomitant]
     Indication: DYSLIPIDAEMIA
     Route: 065
     Dates: start: 20110407
  5. DIAZEPAM [Concomitant]
     Indication: INSOMNIA
     Route: 048
     Dates: start: 20110407

REACTIONS (1)
  - Hyperbilirubinaemia [Recovered/Resolved]
